FAERS Safety Report 19738835 (Version 2)
Quarter: 2021Q3

REPORT INFORMATION
  Report Type: Spontaneous
  Country: US (occurrence: US)
  Receive Date: 20210824
  Receipt Date: 20210910
  Transmission Date: 20211014
  Serious: No
  Sender: FDA-Public Use
  Company Number: US-MYLANLABS-2021M1050063

PATIENT
  Sex: Male

DRUGS (2)
  1. DEXAMETHASONE SODIUM PHOSPHATE INJECTION USP 4 MG/ML [Suspect]
     Active Substance: DEXAMETHASONE
     Indication: BUNION OPERATION
     Dosage: UNK
  2. LIDOCAINE. [Suspect]
     Active Substance: LIDOCAINE
     Indication: PRODUCT USED FOR UNKNOWN INDICATION
     Dosage: UNK

REACTIONS (4)
  - Feeling drunk [Recovered/Resolved]
  - Drug ineffective [Unknown]
  - Somnolence [Recovered/Resolved]
  - Dizziness [Recovered/Resolved]
